FAERS Safety Report 4994175-3 (Version None)
Quarter: 2006Q2

REPORT INFORMATION
  Report Type: 
  Country: None (occurrence: None)
  Receive Date: 20060503
  Receipt Date: 20060418
  Transmission Date: 20061013
  Serious: Yes (Hospitalization)
  Sender: FDA-Public Use
  Company Number: 2006-141358-NL

PATIENT
  Age: 18 Year
  Sex: Female

DRUGS (1)
  1. NUVARING [Suspect]
     Indication: CONTRACEPTION
     Dosage: DF
     Route: 067
     Dates: start: 20051215, end: 20060322

REACTIONS (9)
  - DIPLOPIA [None]
  - EAR INFECTION [None]
  - INTRACRANIAL VENOUS SINUS THROMBOSIS [None]
  - PHOTOPHOBIA [None]
  - SUPERIOR SAGITTAL SINUS THROMBOSIS [None]
  - TRANSVERSE SINUS THROMBOSIS [None]
  - URINARY TRACT INFECTION [None]
  - VISUAL DISTURBANCE [None]
  - VOMITING [None]
